FAERS Safety Report 19690701 (Version 1)
Quarter: 2021Q3

REPORT INFORMATION
  Report Type: Spontaneous
  Country: US (occurrence: US)
  Receive Date: 20210812
  Receipt Date: 20210812
  Transmission Date: 20211014
  Serious: No
  Sender: FDA-Public Use
  Company Number: US-GLENMARK PHARMACEUTICALS-2021GMK054326

PATIENT

DRUGS (1)
  1. TELMISARTAN TABLETS USP, 40 MG [Suspect]
     Active Substance: TELMISARTAN
     Indication: HYPERTENSION
     Dosage: 40 MILLIGRAM, BID
     Route: 065

REACTIONS (4)
  - Product taste abnormal [Unknown]
  - Illness [Unknown]
  - Therapeutic product effect decreased [Unknown]
  - Headache [Unknown]
